FAERS Safety Report 24843121 (Version 1)
Quarter: 2025Q1

REPORT INFORMATION
  Report Type: Spontaneous
  Country: US (occurrence: US)
  Receive Date: 20250115
  Receipt Date: 20250115
  Transmission Date: 20250409
  Serious: No
  Sender: HRA PHARMA
  Company Number: US-ORG100014127-2024000290

PATIENT
  Age: 54 Year
  Sex: Male

DRUGS (14)
  1. MITOTANE [Interacting]
     Active Substance: MITOTANE
     Indication: Adrenal gland cancer
     Dosage: 1000MG, Q4H
     Route: 048
  2. MITOTANE [Interacting]
     Active Substance: MITOTANE
     Indication: Adrenal gland cancer
     Dosage: 5000MG, QD
  3. CABOMETYX [Interacting]
     Active Substance: CABOZANTINIB S-MALATE
     Indication: Adrenal gland cancer
     Dosage: 60MG PER DAY
     Dates: start: 20240625, end: 20240702
  4. CABOMETYX [Interacting]
     Active Substance: CABOZANTINIB S-MALATE
     Indication: Adrenal gland cancer
     Dosage: 60 MG
     Dates: start: 20240731
  5. OPDIVO [Concomitant]
     Active Substance: NIVOLUMAB
     Indication: Adrenal gland cancer
     Dates: start: 20240625
  6. YERVOY [Concomitant]
     Active Substance: IPILIMUMAB
     Indication: Adrenal gland cancer
     Dates: start: 20240625
  7. ZOFRAN [Concomitant]
     Active Substance: ONDANSETRON HYDROCHLORIDE
     Indication: Product used for unknown indication
  8. IMODIUM [Concomitant]
     Active Substance: LOPERAMIDE HYDROCHLORIDE
     Indication: Product used for unknown indication
  9. AMLODIPINE [Concomitant]
     Active Substance: AMLODIPINE BESYLATE
     Indication: Product used for unknown indication
  10. JARDIANCE [Concomitant]
     Active Substance: EMPAGLIFLOZIN
     Indication: Product used for unknown indication
  11. HYDROCHLOROTHIAZIDE [Concomitant]
     Active Substance: HYDROCHLOROTHIAZIDE
     Indication: Product used for unknown indication
  12. LOSARTAN [Concomitant]
     Active Substance: LOSARTAN
     Indication: Product used for unknown indication
  13. METOPROLOL TARTRATE [Concomitant]
     Active Substance: METOPROLOL TARTRATE
     Indication: Product used for unknown indication
  14. SAVAYSA [Concomitant]
     Active Substance: EDOXABAN TOSYLATE
     Indication: Product used for unknown indication

REACTIONS (8)
  - Constipation [Recovered/Resolved]
  - Stomatitis [Not Recovered/Not Resolved]
  - Tongue ulceration [Not Recovered/Not Resolved]
  - Taste disorder [Not Recovered/Not Resolved]
  - Rash macular [Not Recovered/Not Resolved]
  - Hepatic enzyme increased [Not Recovered/Not Resolved]
  - Drug interaction [Unknown]
  - Off label use [Unknown]
